FAERS Safety Report 20866518 (Version 2)
Quarter: 2022Q3

REPORT INFORMATION
  Report Type: Other
  Country: FI (occurrence: FI)
  Receive Date: 20220524
  Receipt Date: 20220825
  Transmission Date: 20221027
  Serious: Yes (Hospitalization, Other)
  Sender: FDA-Public Use
  Company Number: FI-TOLMAR, INC.-22FI033021

PATIENT
  Age: 78 Year
  Sex: Male

DRUGS (13)
  1. ELIGARD [Suspect]
     Active Substance: LEUPROLIDE ACETATE
     Indication: Prostate cancer
     Dosage: 22.5 MILLIGRAM, Q 3 MONTH
     Route: 058
     Dates: start: 20170704
  2. ENZALUTAMIDE [Suspect]
     Active Substance: ENZALUTAMIDE
     Indication: Prostate cancer
     Dosage: UNK, ONCE DAILY
     Route: 048
     Dates: start: 20170704
  3. WARFARIN SODIUM [Concomitant]
     Active Substance: WARFARIN SODIUM
     Indication: Atrial fibrillation
     Dosage: UNK
     Route: 048
     Dates: start: 20170116
  4. ZOLPIDEM TARTRATE [Concomitant]
     Active Substance: ZOLPIDEM TARTRATE
     Indication: Insomnia
     Dosage: UNK
     Route: 048
     Dates: start: 2016
  5. METOPROLOL TARTRATE [Concomitant]
     Active Substance: METOPROLOL TARTRATE
     Indication: Hypertension
     Dosage: UNK
     Route: 048
     Dates: start: 2019
  6. HYDROCHLOROTHIAZIDE\LOSARTAN POTASSIUM [Concomitant]
     Active Substance: HYDROCHLOROTHIAZIDE\LOSARTAN POTASSIUM
     Indication: Hypertension
     Dosage: UNK
     Route: 048
     Dates: start: 2015, end: 20220530
  7. COZAAR [Concomitant]
     Active Substance: LOSARTAN POTASSIUM
     Indication: Hypertension
     Dosage: 50 MILLIGRAM, QD
     Route: 048
     Dates: start: 20220531
  8. CITALOPRAM HYDROBROMIDE [Concomitant]
     Active Substance: CITALOPRAM HYDROBROMIDE
     Indication: Prophylaxis
     Dosage: UNK
     Route: 048
     Dates: start: 201709
  9. PANADOL [Concomitant]
     Active Substance: ACETAMINOPHEN
     Indication: Haematuria
     Dosage: UNK
     Dates: start: 20200511
  10. CALCIUM\CHOLECALCIFEROL [Concomitant]
     Active Substance: CALCIUM\CHOLECALCIFEROL
     Indication: Prophylaxis
     Dosage: UNK
     Route: 048
     Dates: start: 20210825
  11. FOLVITE [FOLIC ACID] [Concomitant]
     Indication: Blood folate decreased
     Dosage: UNK
     Route: 048
     Dates: start: 20210829
  12. PEGANONE [Concomitant]
     Active Substance: ETHOTOIN
     Indication: Prophylaxis
     Dosage: UNK
     Route: 048
     Dates: start: 20200403
  13. INNOHEP [Concomitant]
     Active Substance: TINZAPARIN SODIUM
     Indication: Thrombosis prophylaxis
     Dosage: 3500 INTERNATIONAL UNIT, QD
     Route: 058
     Dates: start: 20220531, end: 20220603

REACTIONS (3)
  - COVID-19 [Recovered/Resolved]
  - Syncope [Recovered/Resolved]
  - Hyponatraemia [Unknown]

NARRATIVE: CASE EVENT DATE: 20220116
